FAERS Safety Report 9693763 (Version 2)
Quarter: 2013Q4

REPORT INFORMATION
  Report Type: Spontaneous
  Country: IL (occurrence: IL)
  Receive Date: 20131118
  Receipt Date: 20131125
  Transmission Date: 20140711
  Serious: Yes (Other)
  Sender: FDA-Public Use
  Company Number: IL-PFIZER INC-2013325881

PATIENT
  Age: 49 Year
  Sex: Female

DRUGS (2)
  1. GEODON [Suspect]
     Indication: SCHIZOPHRENIA
     Dosage: 60 MG, 2X/DAY
     Route: 048
     Dates: start: 20100524
  2. GEODON [Suspect]
     Dosage: 120 MG, UNK
     Route: 048

REACTIONS (3)
  - Parkinsonism [Recovering/Resolving]
  - Agitation [Recovering/Resolving]
  - Restlessness [Recovering/Resolving]
